FAERS Safety Report 17481317 (Version 2)
Quarter: 2020Q3

REPORT INFORMATION
  Report Type: Spontaneous
  Country: US (occurrence: US)
  Receive Date: 20200302
  Receipt Date: 20200805
  Transmission Date: 20201102
  Serious: No
  Sender: FDA-Public Use
  Company Number: US-009507513-2003USA000003

PATIENT
  Sex: Female
  Weight: 62.59 kg

DRUGS (7)
  1. CYANOCOBALAMIN. [Concomitant]
     Active Substance: CYANOCOBALAMIN
     Dosage: UNK
  2. ASCORBIC ACID. [Concomitant]
     Active Substance: ASCORBIC ACID
     Dosage: UNK
  3. NAPROXEN. [Concomitant]
     Active Substance: NAPROXEN
     Dosage: UNK, PRN
  4. NEXPLANON [Suspect]
     Active Substance: ETONOGESTREL
     Dosage: 1 ROD (68 MILLIGRAM) PER 3 YEARS
     Route: 058
  5. VH ESSENTIALS PREBIOTIC [Concomitant]
     Dosage: UNK
  6. NEXPLANON [Suspect]
     Active Substance: ETONOGESTREL
     Dosage: 1 ROD (68 MILLIGRAM) PER 3 YEARS
     Route: 058
  7. VITAMINS (UNSPECIFIED) [Concomitant]
     Active Substance: VITAMINS
     Dosage: UNK

REACTIONS (4)
  - Complication of device insertion [Recovered/Resolved]
  - Device difficult to use [Recovered/Resolved]
  - Product quality issue [Unknown]
  - No adverse event [Unknown]
